FAERS Safety Report 17942536 (Version 5)
Quarter: 2021Q4

REPORT INFORMATION
  Report Type: Spontaneous
  Country: FR (occurrence: FR)
  Receive Date: 20200625
  Receipt Date: 20211102
  Transmission Date: 20220304
  Serious: Yes (Hospitalization, Disabling, Other)
  Sender: FDA-Public Use
  Company Number: FR-ADVANZ PHARMA-202005006499

PATIENT

DRUGS (8)
  1. HYDROXYCHLOROQUINE SULFATE [Suspect]
     Active Substance: HYDROXYCHLOROQUINE SULFATE
     Indication: Rheumatoid arthritis
     Dosage: 2 DOSAGE FORM, QD
     Route: 048
     Dates: start: 1990
  2. HYDROXYCHLOROQUINE SULFATE [Suspect]
     Active Substance: HYDROXYCHLOROQUINE SULFATE
     Indication: Chondropathy
  3. METHOTREXATE [Concomitant]
     Active Substance: METHOTREXATE
     Indication: Rheumatoid arthritis
     Dosage: UNK
  4. CORDARONE [Concomitant]
     Active Substance: AMIODARONE HYDROCHLORIDE
     Dosage: UNK
  5. BISOPROLOL FUMARATE [Concomitant]
     Active Substance: BISOPROLOL FUMARATE
     Dosage: UNK
  6. FUROSEMIDE [Concomitant]
     Active Substance: FUROSEMIDE
     Dosage: UNK
  7. ZOLPIDEM TARTRATE [Concomitant]
     Active Substance: ZOLPIDEM TARTRATE
     Dosage: UNK
  8. CHOLECALCIFEROL [Concomitant]
     Active Substance: CHOLECALCIFEROL
     Dosage: UNK

REACTIONS (18)
  - Cardiac arrest [Unknown]
  - Meningioma [Unknown]
  - Eyelid ptosis [Unknown]
  - Procedural headache [Unknown]
  - Post procedural complication [Unknown]
  - Myocardial infarction [Unknown]
  - Disability [Unknown]
  - Arrhythmia [Unknown]
  - Visual impairment [Unknown]
  - IIIrd nerve paralysis [Unknown]
  - Colour blindness [Unknown]
  - Vision blurred [Unknown]
  - Cardiac disorder [Unknown]
  - Eye disorder [Unknown]
  - Hypoglycaemia [Unknown]
  - Toxicity to various agents [Unknown]
  - Musculoskeletal disorder [Unknown]
  - Discomfort [Unknown]

NARRATIVE: CASE EVENT DATE: 19970101
